FAERS Safety Report 5934951-3 (Version None)
Quarter: 2008Q4

REPORT INFORMATION
  Report Type: 
  Country: None (occurrence: None)
  Receive Date: 20081028
  Receipt Date: 20081014
  Transmission Date: 20090506
  Serious: Yes (Other)
  Sender: FDA-Public Use
  Company Number: RTD20080057

PATIENT
  Age: 60 Year
  Sex: Male

DRUGS (2)
  1. RANITIDINE [Suspect]
     Indication: GASTRIC ULCER HAEMORRHAGE
     Dosage: 75 MG, DAILY, ORAL
     Route: 048
     Dates: start: 20080701, end: 20081001
  2. HYDROCODONE [Concomitant]

REACTIONS (5)
  - BLINDNESS UNILATERAL [None]
  - MYODESOPSIA [None]
  - RETINAL DETACHMENT [None]
  - RETINAL TEAR [None]
  - VITREOUS HAEMORRHAGE [None]
